FAERS Safety Report 14914068 (Version 1)
Quarter: 2018Q2

REPORT INFORMATION
  Report Type: Spontaneous
  Country: IT (occurrence: IT)
  Receive Date: 20180518
  Receipt Date: 20180518
  Transmission Date: 20180711
  Serious: Yes (Other)
  Sender: FDA-Public Use
  Company Number: IT-009507513-1804ITA008257

PATIENT
  Age: 68 Year
  Sex: Male

DRUGS (1)
  1. ZEPATIER [Suspect]
     Active Substance: ELBASVIR\GRAZOPREVIR
     Indication: HEPATITIS C
     Dosage: 50MG+100MG
     Route: 048
     Dates: start: 20180312, end: 20180402

REACTIONS (3)
  - C-reactive protein increased [Recovered/Resolved]
  - Psoriatic arthropathy [Recovered/Resolved]
  - Pyrexia [Recovered/Resolved]

NARRATIVE: CASE EVENT DATE: 20180320
